FAERS Safety Report 6613193-2 (Version None)
Quarter: 2010Q1

REPORT INFORMATION
  Report Type: 
  Country: None (occurrence: None)
  Receive Date: 20100304
  Receipt Date: 20100224
  Transmission Date: 20100710
  Serious: Yes (Other)
  Sender: FDA-Public Use
  Company Number: AU-JNJFOC-20100300340

PATIENT
  Age: 57 Year
  Sex: Female

DRUGS (2)
  1. INFLIXIMAB [Suspect]
     Indication: CROHN'S DISEASE
     Route: 042
  2. INFLIXIMAB [Suspect]
     Dosage: 3 INFUSIONS
     Route: 042

REACTIONS (2)
  - COLORECTAL CANCER [None]
  - METASTASES TO LIVER [None]
